FAERS Safety Report 25595821 (Version 1)
Quarter: 2025Q3

REPORT INFORMATION
  Report Type: Report from Study
  Country: GB (occurrence: GB)
  Receive Date: 20250723
  Receipt Date: 20250723
  Transmission Date: 20251021
  Serious: Yes (Life-Threatening, Hospitalization)
  Sender: SAMSUNG BIOEPIS
  Company Number: GB-SAMSUNG BIOEPIS-SB-2025-25009

PATIENT
  Age: 26 Year
  Sex: Male

DRUGS (1)
  1. PYZCHIVA [Suspect]
     Active Substance: USTEKINUMAB-TTWE
     Indication: Crohn^s disease
     Dates: start: 202412

REACTIONS (1)
  - Hypereosinophilic syndrome [Unknown]
